FAERS Safety Report 13962855 (Version 1)
Quarter: 2017Q3

REPORT INFORMATION
  Report Type: Spontaneous
  Country: IN (occurrence: IN)
  Receive Date: 20170913
  Receipt Date: 20170913
  Transmission Date: 20171128
  Serious: Yes (Hospitalization, Other)
  Sender: FDA-Public Use
  Company Number: IN-VISTAPHARM, INC.-VER201709-000510

PATIENT
  Age: 42 Year
  Sex: Female

DRUGS (12)
  1. HYDROCODONE AND ACETAMINOPHEN [Suspect]
     Active Substance: ACETAMINOPHEN\HYDROCODONE
     Indication: ANXIETY
  2. CINNARIZINE [Suspect]
     Active Substance: CINNARIZINE
     Indication: VERTIGO
  3. HYDROCODONE AND ACETAMINOPHEN [Suspect]
     Active Substance: ACETAMINOPHEN\HYDROCODONE
     Indication: VERTIGO
  4. DIMENHYDRINATE. [Suspect]
     Active Substance: DIMENHYDRINATE
     Indication: ANXIETY
  5. DIMENHYDRINATE. [Suspect]
     Active Substance: DIMENHYDRINATE
     Indication: RESTLESSNESS
  6. METOCLOPRAMIDE. [Suspect]
     Active Substance: METOCLOPRAMIDE
     Indication: ANXIETY
  7. CINNARIZINE [Suspect]
     Active Substance: CINNARIZINE
     Indication: ANXIETY
  8. DIMENHYDRINATE. [Suspect]
     Active Substance: DIMENHYDRINATE
     Indication: VERTIGO
  9. HYDROCODONE AND ACETAMINOPHEN [Suspect]
     Active Substance: ACETAMINOPHEN\HYDROCODONE
     Indication: RESTLESSNESS
  10. METOCLOPRAMIDE. [Suspect]
     Active Substance: METOCLOPRAMIDE
     Indication: VERTIGO
  11. METOCLOPRAMIDE. [Suspect]
     Active Substance: METOCLOPRAMIDE
     Indication: RESTLESSNESS
  12. CINNARIZINE [Suspect]
     Active Substance: CINNARIZINE
     Indication: RESTLESSNESS

REACTIONS (2)
  - Drug interaction [Unknown]
  - Toxic epidermal necrolysis [Recovering/Resolving]
